FAERS Safety Report 6295609-7 (Version None)
Quarter: 2009Q3

REPORT INFORMATION
  Report Type: 
  Country: None (occurrence: None)
  Receive Date: 20090731
  Receipt Date: 20090721
  Transmission Date: 20100115
  Serious: Yes (Hospitalization)
  Sender: FDA-Public Use
  Company Number: 1000005859

PATIENT
  Age: 75 Year
  Sex: Male

DRUGS (6)
  1. NEBIVOLOL HCL [Suspect]
     Indication: DRUG USE FOR UNKNOWN INDICATION
     Dosage: 7.5 MG (7.5 MG, 1 IN 1 D), ORAL
     Route: 048
  2. CORDARONE [Concomitant]
  3. COVERSYL [Concomitant]
  4. FLUDEX [Concomitant]
  5. PREVISCAN [Concomitant]
  6. CRESTOR [Concomitant]

REACTIONS (16)
  - ACALCULIA [None]
  - AGRAPHIA [None]
  - ALTERED STATE OF CONSCIOUSNESS [None]
  - ATRIOVENTRICULAR BLOCK FIRST DEGREE [None]
  - BRADYCARDIA [None]
  - BRAIN INJURY [None]
  - CEREBROVASCULAR ACCIDENT [None]
  - DEMENTIA [None]
  - DISTURBANCE IN ATTENTION [None]
  - FALL [None]
  - GAIT DISTURBANCE [None]
  - HYPOKALAEMIA [None]
  - HYPONATRAEMIA [None]
  - MALAISE [None]
  - PYRAMIDAL TRACT SYNDROME [None]
  - SOMNOLENCE [None]
